FAERS Safety Report 22080378 (Version 1)
Quarter: 2023Q1

REPORT INFORMATION
  Report Type: Spontaneous
  Country: US (occurrence: None)
  Receive Date: 20230309
  Receipt Date: 20230309
  Transmission Date: 20230418
  Serious: No
  Sender: FDA-Public Use
  Company Number: None

PATIENT
  Sex: Female

DRUGS (1)
  1. MAYZENT [Suspect]
     Active Substance: SIPONIMOD
     Indication: Multiple sclerosis
     Dosage: 2 MG DAILY PO
     Route: 048
     Dates: start: 202110

REACTIONS (4)
  - Drug ineffective [None]
  - Mobility decreased [None]
  - Gait inability [None]
  - Loss of personal independence in daily activities [None]
